FAERS Safety Report 14950420 (Version 1)
Quarter: 2018Q2

REPORT INFORMATION
  Report Type: Spontaneous
  Country: HN (occurrence: HN)
  Receive Date: 20180530
  Receipt Date: 20180530
  Transmission Date: 20180711
  Serious: Yes (Disabling, Other)
  Sender: FDA-Public Use
  Company Number: HN-ROCHE-2131150

PATIENT
  Age: 70 Year
  Sex: Female

DRUGS (2)
  1. ACCENTRIX [Suspect]
     Active Substance: RANIBIZUMAB
     Indication: RETINAL VEIN OCCLUSION
     Route: 065
  2. ACCENTRIX [Suspect]
     Active Substance: RANIBIZUMAB
     Indication: MACULAR OEDEMA
     Dosage: UNK UNK, QMO
     Route: 065
     Dates: start: 20180403

REACTIONS (5)
  - Vitritis [Unknown]
  - Iris adhesions [Unknown]
  - Blindness unilateral [Unknown]
  - Vitreous disorder [Not Recovered/Not Resolved]
  - Fibrosis [Not Recovered/Not Resolved]

NARRATIVE: CASE EVENT DATE: 20180406
